FAERS Safety Report 24433301 (Version 1)
Quarter: 2024Q4

REPORT INFORMATION
  Report Type: Spontaneous
  Country: US (occurrence: US)
  Receive Date: 20241014
  Receipt Date: 20241014
  Transmission Date: 20250115
  Serious: Yes (Other)
  Sender: PFIZER
  Company Number: US-PFIZER INC-PV202400130648

PATIENT
  Age: 21 Year
  Sex: Female

DRUGS (3)
  1. CLINDAMYCIN HYDROCHLORIDE [Suspect]
     Active Substance: CLINDAMYCIN HYDROCHLORIDE
     Dosage: UNK
  2. DUPIXENT [Suspect]
     Active Substance: DUPILUMAB
     Indication: Eczema
     Dosage: 600 MG, WEEKLY
     Route: 058
     Dates: start: 20231121
  3. DUPIXENT [Suspect]
     Active Substance: DUPILUMAB
     Indication: Dermatitis atopic
     Dosage: 300 MG EVERY WEEK
     Route: 058
     Dates: start: 202312

REACTIONS (15)
  - Anaphylactic reaction [Unknown]
  - Allergy to animal [Recovered/Resolved]
  - Swelling face [Recovered/Resolved]
  - Eye swelling [Recovered/Resolved]
  - Skin exfoliation [Unknown]
  - Lip swelling [Unknown]
  - Oral discomfort [Unknown]
  - Blister [Not Recovered/Not Resolved]
  - Swollen tongue [Unknown]
  - Tongue discomfort [Unknown]
  - Pharyngeal swelling [Unknown]
  - Oropharyngeal discomfort [Unknown]
  - Erythema [Unknown]
  - Drug hypersensitivity [Unknown]
  - Skin exfoliation [Not Recovered/Not Resolved]

NARRATIVE: CASE EVENT DATE: 20231101
